FAERS Safety Report 11463711 (Version 1)
Quarter: 2015Q3

REPORT INFORMATION
  Report Type: Spontaneous
  Country: US (occurrence: US)
  Receive Date: 20150831
  Receipt Date: 20150831
  Transmission Date: 20151125
  Serious: No
  Sender: FDA-Public Use
  Company Number: US-ELI_LILLY_AND_COMPANY-US201104004757

PATIENT
  Sex: Female

DRUGS (3)
  1. CYMBALTA [Suspect]
     Active Substance: DULOXETINE HYDROCHLORIDE
     Dosage: 30 MG, UNK
     Dates: start: 201102, end: 20110407
  2. ESTRADIOL. [Concomitant]
     Active Substance: ESTRADIOL
  3. CYMBALTA [Suspect]
     Active Substance: DULOXETINE HYDROCHLORIDE
     Dosage: 60 MG, UNK
     Dates: start: 2006, end: 201102

REACTIONS (7)
  - Vertigo [Recovering/Resolving]
  - Headache [Recovering/Resolving]
  - Cold sweat [Recovering/Resolving]
  - Discomfort [Recovering/Resolving]
  - Insomnia [Recovering/Resolving]
  - Gastrointestinal disorder [Recovering/Resolving]
  - Drug withdrawal syndrome [Recovering/Resolving]

NARRATIVE: CASE EVENT DATE: 20110408
